FAERS Safety Report 9153246 (Version 1)
Quarter: 2013Q1

REPORT INFORMATION
  Report Type: Spontaneous
  Country: GB (occurrence: None)
  Receive Date: 20130201
  Receipt Date: 20130201
  Transmission Date: 20140127
  Serious: Yes (Hospitalization)
  Sender: FDA-Public Use
  Company Number: 2013-01536

PATIENT
  Age: 36 Year
  Sex: Female

DRUGS (1)
  1. LACTULOSE (UNKNOWN) (LACTULOSE) UNK, UNKUNK [Suspect]
     Indication: PRODUCT USED FOR UNKNOWN INDICATION

REACTIONS (6)
  - Hypersensitivity [None]
  - Oedema mouth [None]
  - Lip swelling [None]
  - Dyspnoea [None]
  - Tremor [None]
  - Muscle contracture [None]
